FAERS Safety Report 5771092-2 (Version None)
Quarter: 2008Q2

REPORT INFORMATION
  Report Type: 
  Country: None (occurrence: None)
  Receive Date: 20080613
  Receipt Date: 20080522
  Transmission Date: 20081010
  Serious: No
  Sender: FDA-Public Use
  Company Number: US-ABBOTT-08P-163-0453349-00

PATIENT
  Sex: Male
  Weight: 72.64 kg

DRUGS (5)
  1. HUMIRA [Suspect]
     Indication: CROHN'S DISEASE
     Route: 050
     Dates: start: 20080520
  2. HUMIRA [Suspect]
     Indication: OSTEOARTHRITIS
  3. CELECOXIB [Concomitant]
     Indication: PAIN
     Route: 048
     Dates: start: 20070401
  4. UNKNOWN PAIN MEDICATIONS [Concomitant]
     Indication: PAIN
     Route: 048
  5. SOME ^OXY^ [Concomitant]
     Indication: PAIN
     Route: 048
     Dates: start: 20080401

REACTIONS (1)
  - ACCIDENTAL EXPOSURE [None]
